FAERS Safety Report 5182605-6 (Version None)
Quarter: 2006Q4

REPORT INFORMATION
  Report Type: 
  Country: None (occurrence: None)
  Receive Date: 20061212
  Receipt Date: 20061128
  Transmission Date: 20070319
  Serious: Yes (Death)
  Sender: FDA-Public Use
  Company Number: 8017220

PATIENT
  Age: 36 Year
  Sex: Female
  Weight: 45.5 kg

DRUGS (2)
  1. KEPPRA [Suspect]
     Indication: CONVULSION
     Dosage: 375 MG 2/D PO
     Route: 048
     Dates: start: 20050617
  2. TRILEPTAL [Concomitant]

REACTIONS (3)
  - INJURY ASPHYXIATION [None]
  - STATUS EPILEPTICUS [None]
  - SUDDEN UNEXPLAINED DEATH IN EPILEPSY [None]
